FAERS Safety Report 9097014 (Version 3)
Quarter: 2013Q1

REPORT INFORMATION
  Report Type: Spontaneous
  Country: US (occurrence: None)
  Receive Date: 20130124
  Receipt Date: 20130212
  Transmission Date: 20140127
  Serious: Yes (Other)
  Sender: FDA-Public Use
  Company Number: AUR-APL-2013-00856

PATIENT
  Age: 65 Year
  Sex: Female

DRUGS (2)
  1. METOPROLOL (METOPROLOL) [Suspect]
     Indication: HEART RATE ABNORMAL
  2. CARVEDILOL (CARVEDILOL) [Suspect]
     Indication: CORONARY ARTERY DISEASE

REACTIONS (3)
  - Pustular psoriasis [None]
  - Drug hypersensitivity [None]
  - Intestinal obstruction [None]
